FAERS Safety Report 17058123 (Version 1)
Quarter: 2019Q4

REPORT INFORMATION
  Report Type: Spontaneous
  Country: US (occurrence: US)
  Receive Date: 20191023
  Receipt Date: 20191023
  Transmission Date: 20200122
  Serious: No
  Sender: FDA-Public Use
  Company Number: None

PATIENT
  Age: 57 Year
  Sex: Female

DRUGS (1)
  1. TETRABENAZINE 12.5MG SUN PHARMACEUTICAL [Suspect]
     Active Substance: TETRABENAZINE
     Route: 048
     Dates: start: 20190820

REACTIONS (4)
  - Swollen tongue [None]
  - Swelling face [None]
  - Dyskinesia [None]
  - Lip swelling [None]

NARRATIVE: CASE EVENT DATE: 20190917
